FAERS Safety Report 20938153 (Version 1)
Quarter: 2022Q2

REPORT INFORMATION
  Report Type: Spontaneous
  Country: US (occurrence: US)
  Receive Date: 20220609
  Receipt Date: 20220609
  Transmission Date: 20220720
  Serious: Yes (Hospitalization)
  Sender: FDA-Public Use
  Company Number: US-MYLANLABS-2022M1042819

PATIENT
  Age: 1 Day
  Sex: Female

DRUGS (8)
  1. ALPROSTADIL [Suspect]
     Active Substance: ALPROSTADIL
     Indication: Patent ductus arteriosus
     Dosage: UNK (INFUSION)
  2. AMPICILLIN [Concomitant]
     Active Substance: AMPICILLIN
     Indication: Evidence based treatment
     Dosage: UNK
  3. AMPICILLIN [Concomitant]
     Active Substance: AMPICILLIN
     Indication: Sepsis
  4. AMPICILLIN [Concomitant]
     Active Substance: AMPICILLIN
     Indication: Prophylaxis
  5. GENTAMICIN [Concomitant]
     Active Substance: GENTAMICIN
     Indication: Evidence based treatment
     Dosage: UNK
  6. GENTAMICIN [Concomitant]
     Active Substance: GENTAMICIN
     Indication: Sepsis
  7. GENTAMICIN [Concomitant]
     Active Substance: GENTAMICIN
     Indication: Prophylaxis
  8. DIPHENHYDRAMINE [Concomitant]
     Active Substance: DIPHENHYDRAMINE
     Indication: Erythema annulare
     Dosage: UNK

REACTIONS (3)
  - Erythema annulare [Recovered/Resolved]
  - Skin oedema [Unknown]
  - Eyelid oedema [Unknown]
